FAERS Safety Report 20019636 (Version 1)
Quarter: 2021Q4

REPORT INFORMATION
  Report Type: Spontaneous
  Country: US (occurrence: US)
  Receive Date: 20211101
  Receipt Date: 20211101
  Transmission Date: 20220303
  Serious: No
  Sender: FDA-Public Use
  Company Number: US-SUNOVION-2021SUN004074

PATIENT
  Sex: Female

DRUGS (1)
  1. LATUDA [Suspect]
     Active Substance: LURASIDONE HYDROCHLORIDE
     Indication: Bipolar disorder
     Dosage: 20 MG
     Route: 048
     Dates: start: 202101, end: 202107

REACTIONS (6)
  - Tongue movement disturbance [Unknown]
  - Tongue biting [Unknown]
  - Facial discomfort [Unknown]
  - Sinusitis [Unknown]
  - Memory impairment [Unknown]
  - Therapy cessation [Unknown]
